FAERS Safety Report 8471839-0 (Version None)
Quarter: 2012Q2

REPORT INFORMATION
  Report Type: 
  Country: None (occurrence: None)
  Receive Date: 20120627
  Receipt Date: 20120618
  Transmission Date: 20120825
  Serious: Yes (Other)
  Sender: FDA-Public Use
  Company Number: RU-ASTRAZENECA-2012SE41339

PATIENT
  Age: 55 Year
  Sex: Male

DRUGS (1)
  1. SYMBICORT [Suspect]
     Indication: ASTHMA
     Dosage: 1 INHALATION 160/4.5, 2 TIMES A DAY
     Route: 055
     Dates: start: 20110101

REACTIONS (1)
  - ASTHMA [None]
